FAERS Safety Report 6443168-8 (Version None)
Quarter: 2009Q4

REPORT INFORMATION
  Report Type: 
  Country: None (occurrence: None)
  Receive Date: 20091117
  Receipt Date: 20091110
  Transmission Date: 20100525
  Serious: Yes (Hospitalization)
  Sender: FDA-Public Use
  Company Number: B0603995A

PATIENT
  Sex: Male

DRUGS (21)
  1. ARIXTRA [Suspect]
     Indication: THROMBOSIS PROPHYLAXIS
     Dosage: 1.5MG PER DAY
     Route: 058
     Dates: start: 20091103, end: 20091107
  2. SOLDEM [Concomitant]
     Route: 042
     Dates: start: 20091031, end: 20091031
  3. UNKNOWN DRUG [Concomitant]
     Route: 042
  4. UNKNOWN DRUG [Concomitant]
     Route: 042
  5. ACTIT [Concomitant]
     Route: 042
     Dates: start: 20091102, end: 20091102
  6. PRIMPERAN TAB [Concomitant]
     Route: 065
     Dates: start: 20091102, end: 20091102
  7. AMICALIQ [Concomitant]
     Route: 042
     Dates: start: 20091102, end: 20091102
  8. PANTOL [Concomitant]
     Dosage: 100MG TWICE PER DAY
     Dates: start: 20091102, end: 20091102
  9. UNKNOWN DRUG [Concomitant]
     Dosage: 1G TWICE PER DAY
     Route: 042
     Dates: start: 20091102, end: 20091104
  10. UNKNOWN DRUG [Concomitant]
     Route: 042
     Dates: start: 20091103, end: 20091103
  11. UNKNOWN DRUG [Concomitant]
     Route: 042
     Dates: start: 20091102, end: 20091102
  12. PREDOPA [Concomitant]
     Route: 042
     Dates: start: 20091102, end: 20091102
  13. PREDOPA [Concomitant]
     Route: 042
     Dates: start: 20091108, end: 20091108
  14. SOSEGON [Concomitant]
     Route: 030
     Dates: start: 20091102, end: 20091102
  15. ATARAX [Concomitant]
     Route: 030
     Dates: start: 20091102, end: 20091102
  16. PHYSIO 35 [Concomitant]
     Route: 042
     Dates: start: 20091103, end: 20091103
  17. PURSENNID [Concomitant]
     Route: 048
     Dates: start: 20091105, end: 20091107
  18. ZOSYN [Concomitant]
     Dosage: 4.5G TWICE PER DAY
     Route: 042
     Dates: start: 20091106, end: 20091108
  19. SEISHOKU [Concomitant]
     Dosage: 100ML TWICE PER DAY
     Route: 042
     Dates: start: 20091106, end: 20091108
  20. FERROMIA [Concomitant]
     Dosage: 50MG TWICE PER DAY
     Route: 048
     Dates: start: 20091107, end: 20091107
  21. UNKNOWN DRUG [Concomitant]
     Route: 042
     Dates: start: 20091108, end: 20091108

REACTIONS (4)
  - ANOREXIA NERVOSA [None]
  - GASTROINTESTINAL ULCER [None]
  - SHOCK HAEMORRHAGIC [None]
  - UPPER GASTROINTESTINAL HAEMORRHAGE [None]
